FAERS Safety Report 7532199-2 (Version None)
Quarter: 2011Q2

REPORT INFORMATION
  Report Type: 
  Country: None (occurrence: None)
  Receive Date: 20110608
  Receipt Date: 20110603
  Transmission Date: 20111010
  Serious: Yes (Other)
  Sender: FDA-Public Use
  Company Number: US-ABBOTT-09P-163-0500530-00

PATIENT
  Sex: Female

DRUGS (7)
  1. HUMIRA [Suspect]
  2. HUMIRA [Suspect]
     Indication: CROHN'S DISEASE
     Route: 058
     Dates: start: 20081209, end: 20101201
  3. NEURONTIN [Concomitant]
     Indication: MIGRAINE
  4. FIORICET [Concomitant]
     Indication: MIGRAINE
  5. ZYRTEC [Concomitant]
     Indication: PRODUCT USED FOR UNKNOWN INDICATION
  6. ZEGERID [Concomitant]
     Indication: PRODUCT USED FOR UNKNOWN INDICATION
  7. VARIOUS UNKNOWN MEDICATIONS [Concomitant]
     Indication: MIGRAINE

REACTIONS (15)
  - ABDOMINAL PAIN [None]
  - CROHN'S DISEASE [None]
  - PAIN IN EXTREMITY [None]
  - PAIN [None]
  - DIARRHOEA [None]
  - BALANCE DISORDER [None]
  - INTESTINAL OBSTRUCTION [None]
  - FATIGUE [None]
  - PERIPHERAL COLDNESS [None]
  - INTESTINAL RESECTION [None]
  - ROSACEA [None]
  - HYPOAESTHESIA [None]
  - SENSORY LOSS [None]
  - ILEECTOMY [None]
  - HEADACHE [None]
